FAERS Safety Report 19996554 (Version 3)
Quarter: 2021Q4

REPORT INFORMATION
  Report Type: Spontaneous
  Country: UY (occurrence: UY)
  Receive Date: 20211026
  Receipt Date: 20211220
  Transmission Date: 20220303
  Serious: No
  Sender: FDA-Public Use
  Company Number: UY-PFIZER INC-202101300196

PATIENT
  Age: 13 Year
  Sex: Male

DRUGS (1)
  1. GENOTROPIN [Suspect]
     Active Substance: SOMATROPIN
     Indication: Body height below normal
     Dosage: 1 TO 1.4 MG 7 TIMES A WEEK
     Dates: start: 20210617

REACTIONS (2)
  - Device issue [Not Recovered/Not Resolved]
  - Device information output issue [Not Recovered/Not Resolved]

NARRATIVE: CASE EVENT DATE: 20210901
